FAERS Safety Report 6760678-4 (Version None)
Quarter: 2010Q2

REPORT INFORMATION
  Report Type: 
  Country: None (occurrence: None)
  Receive Date: 20100608
  Receipt Date: 20100604
  Transmission Date: 20101027
  Serious: Yes (Death)
  Sender: FDA-Public Use
  Company Number: JP-JNJFOC-20100602209

PATIENT
  Sex: Female
  Weight: 39 kg

DRUGS (1)
  1. ITRIZOLE [Suspect]
     Indication: PNEUMONIA CYTOMEGALOVIRAL
     Route: 041

REACTIONS (4)
  - CHRONIC LYMPHOCYTIC LEUKAEMIA [None]
  - HYPOGLYCAEMIA [None]
  - TONIC CONVULSION [None]
  - VOMITING [None]
